FAERS Safety Report 7916180-7 (Version None)
Quarter: 2011Q4

REPORT INFORMATION
  Report Type: 
  Country: None (occurrence: None)
  Receive Date: 20111116
  Receipt Date: 20110224
  Transmission Date: 20120403
  Serious: Yes (Life-Threatening, Hospitalization)
  Sender: FDA-Public Use
  Company Number: US-BAYER-201013585NA

PATIENT
  Sex: Female
  Weight: 68 kg

DRUGS (13)
  1. YAZ [Suspect]
     Indication: ACNE
     Dosage: UNK UNK, QD
     Route: 048
     Dates: start: 20070205, end: 20080307
  2. ZOLPIDEM [Concomitant]
     Dosage: 10 MG, UNK
  3. DICYCLOMINE [Concomitant]
     Dosage: 20 MG, UNK
  4. BUSPIRONE [Concomitant]
     Dosage: 10 MG, UNK
  5. LOESTRIN 1.5/30 [Concomitant]
     Dosage: UNK
     Dates: start: 20071207
  6. BUSPAR [Concomitant]
     Dosage: 10 MG, UNK
  7. ST. JOHN'S WORT [Concomitant]
  8. CLARITIN [Concomitant]
  9. YASMIN [Suspect]
     Indication: PREMENSTRUAL SYNDROME
  10. YASMIN [Suspect]
     Indication: ACNE
     Dosage: UNK
     Dates: start: 20070205, end: 20080307
  11. YAZ [Suspect]
     Indication: PREMENSTRUAL SYNDROME
  12. XANAX XR [Concomitant]
     Dosage: 0.25 MG,
  13. UNCODEABLE ^UNCLASSIFIABLE^ [Concomitant]
     Dosage: 10 MG, UNK

REACTIONS (10)
  - PANIC ATTACK [None]
  - ABDOMINAL PAIN [None]
  - SUICIDAL IDEATION [None]
  - INSOMNIA [None]
  - NAUSEA [None]
  - HEART INJURY [None]
  - DEPRESSION [None]
  - DECREASED APPETITE [None]
  - PALPITATIONS [None]
  - ANXIETY [None]
